FAERS Safety Report 4892841-1 (Version None)
Quarter: 2006Q1

REPORT INFORMATION
  Report Type: 
  Country: None (occurrence: None)
  Receive Date: 20060126
  Receipt Date: 20040720
  Transmission Date: 20060701
  Serious: Yes (Hospitalization, Disabling, Other)
  Sender: FDA-Public Use
  Company Number: US-MERCK-0407USA01738

PATIENT
  Age: 54 Year
  Sex: Male
  Weight: 100 kg

DRUGS (13)
  1. VIOXX [Suspect]
     Indication: ARTHRALGIA
     Route: 048
     Dates: start: 20000314, end: 20020101
  2. VIOXX [Suspect]
     Route: 048
     Dates: start: 20030101, end: 20030202
  3. VIOXX [Suspect]
     Route: 048
     Dates: start: 20021225
  4. VIOXX [Suspect]
     Indication: ARTHRITIS
     Route: 048
     Dates: start: 20000314, end: 20020101
  5. VIOXX [Suspect]
     Route: 048
     Dates: start: 20030101, end: 20030202
  6. VIOXX [Suspect]
     Route: 048
     Dates: start: 20021225
  7. PLAVIX [Concomitant]
     Route: 048
  8. CLONAZEPAM [Concomitant]
     Route: 048
  9. ULTRAM [Concomitant]
     Route: 048
  10. DIOVAN HCT [Concomitant]
     Route: 048
  11. LIPITOR [Concomitant]
     Route: 048
  12. ALLEGRA [Concomitant]
     Route: 048
  13. [THERAPY UNSPECIFIED] [Concomitant]
     Route: 048

REACTIONS (31)
  - ACUTE MYOCARDIAL INFARCTION [None]
  - ANAEMIA [None]
  - ANGINA PECTORIS [None]
  - ANXIETY [None]
  - ARTERIOSCLEROSIS [None]
  - ARTHROFIBROSIS [None]
  - BLOOD CHOLESTEROL INCREASED [None]
  - CARDIAC FAILURE CONGESTIVE [None]
  - CARDIOGENIC SHOCK [None]
  - CHEST PAIN [None]
  - CHOLELITHIASIS [None]
  - CHRONIC FATIGUE SYNDROME [None]
  - CORONARY ARTERY DISEASE [None]
  - CORONARY ARTERY RESTENOSIS [None]
  - CORONARY ARTERY STENOSIS [None]
  - CORONARY ARTERY THROMBOSIS [None]
  - DEPRESSION [None]
  - DISTURBANCE IN ATTENTION [None]
  - DIZZINESS [None]
  - EMOTIONAL DISTRESS [None]
  - GASTROOESOPHAGEAL REFLUX DISEASE [None]
  - HAEMATOMA [None]
  - HEART DISEASE CONGENITAL [None]
  - HYPERLIPIDAEMIA [None]
  - HYPERTENSION [None]
  - ISCHAEMIC CARDIOMYOPATHY [None]
  - LOW DENSITY LIPOPROTEIN INCREASED [None]
  - MYOCARDIAL INFARCTION [None]
  - OSTEOARTHRITIS [None]
  - RESPIRATORY FAILURE [None]
  - TRAUMATIC HAEMATOMA [None]
